FAERS Safety Report 5268583-X (Version None)
Quarter: 2007Q1

REPORT INFORMATION
  Report Type: 
  Country: None (occurrence: None)
  Receive Date: 20070319
  Receipt Date: 20070314
  Transmission Date: 20070707
  Serious: Yes (Death, Disabling)
  Sender: FDA-Public Use
  Company Number: FR-BRISTOL-MYERS SQUIBB COMPANY-13714431

PATIENT
  Age: 1 Day
  Sex: Female

DRUGS (2)
  1. SUSTIVA [Suspect]
     Dosage: TRANSPLACENTAL EXPOSURE UNKNOWN.
     Route: 064
     Dates: start: 20061019
  2. COMBIVIR [Suspect]
     Route: 064

REACTIONS (2)
  - EXOMPHALOS [None]
  - PREGNANCY [None]
